FAERS Safety Report 7487515-7 (Version None)
Quarter: 2011Q2

REPORT INFORMATION
  Report Type: 
  Country: None (occurrence: None)
  Receive Date: 20110510
  Receipt Date: 20110427
  Transmission Date: 20111010
  Serious: Yes (Death, Hospitalization, Other)
  Sender: FDA-Public Use
  Company Number: TRP_07704_2011

PATIENT
  Age: 60 Year
  Sex: Female

DRUGS (7)
  1. PEGINTERFERON ALFA-2B [Suspect]
     Indication: HEPATITIS C
     Dosage: (DF)
  2. OMEPRAZOLE [Concomitant]
  3. BUPROPION HCL [Concomitant]
  4. ANTACIDS [Concomitant]
  5. RIBAVIRIN [Suspect]
     Indication: HEPATITIS C
     Dosage: (DF)
  6. FLUOXETINE [Concomitant]
  7. EPOETIN ALFA [Concomitant]

REACTIONS (86)
  - PROTHROMBIN TIME PROLONGED [None]
  - BLOOD LACTIC ACID INCREASED [None]
  - ACQUIRED DIAPHRAGMATIC EVENTRATION [None]
  - AGITATION [None]
  - ABDOMINAL RIGIDITY [None]
  - LYMPHADENOPATHY MEDIASTINAL [None]
  - SMOOTH MUSCLE ANTIBODY POSITIVE [None]
  - SEPSIS [None]
  - SERUM FERRITIN INCREASED [None]
  - ACINETOBACTER INFECTION [None]
  - CANDIDIASIS [None]
  - ABNORMAL BEHAVIOUR [None]
  - CARBON DIOXIDE DECREASED [None]
  - SKIN ULCER [None]
  - URINE KETONE BODY PRESENT [None]
  - GENERAL PHYSICAL HEALTH DETERIORATION [None]
  - MENTAL STATUS CHANGES [None]
  - ESCHERICHIA TEST POSITIVE [None]
  - UNRESPONSIVE TO STIMULI [None]
  - BRONCHOPULMONARY ASPERGILLOSIS [None]
  - HEPATIC FAILURE [None]
  - DYSARTHRIA [None]
  - DIARRHOEA [None]
  - ECCHYMOSIS [None]
  - BLOOD SODIUM DECREASED [None]
  - DISSEMINATED INTRAVASCULAR COAGULATION [None]
  - URINARY SEDIMENT PRESENT [None]
  - CAT SCRATCH DISEASE [None]
  - BACTERAEMIA [None]
  - MARROW HYPERPLASIA [None]
  - RESPIRATORY RATE INCREASED [None]
  - ASTERIXIS [None]
  - LABORATORY TEST INTERFERENCE [None]
  - BLOOD ALBUMIN DECREASED [None]
  - SINUS TACHYCARDIA [None]
  - COAGULATION FACTOR V LEVEL DECREASED [None]
  - DRUG INEFFECTIVE [None]
  - LUNG NEOPLASM [None]
  - LYMPHADENOPATHY [None]
  - GASTRIC VARICES [None]
  - PULMONARY OEDEMA [None]
  - COMPLEMENT FACTOR C4 DECREASED [None]
  - HISTIOCYTOSIS HAEMATOPHAGIC [None]
  - RESTLESSNESS [None]
  - ACTIVATED PARTIAL THROMBOPLASTIN TIME PROLONGED [None]
  - BLOOD CALCIUM DECREASED [None]
  - ATELECTASIS [None]
  - FAECAL INCONTINENCE [None]
  - BLOOD PRESSURE SYSTOLIC INCREASED [None]
  - PLEURAL EFFUSION [None]
  - PULMONARY MASS [None]
  - PYREXIA [None]
  - URINE ABNORMALITY [None]
  - DRUG SCREEN POSITIVE [None]
  - HEPATITIS A ANTIBODY POSITIVE [None]
  - HEPATITIS B ANTIBODY POSITIVE [None]
  - CHOLELITHIASIS [None]
  - PHOTOPHOBIA [None]
  - ASCITES [None]
  - MUSCLE HAEMORRHAGE [None]
  - CSF GLUCOSE DECREASED [None]
  - GLOMERULONEPHRITIS [None]
  - HAEMATURIA [None]
  - PANCYTOPENIA [None]
  - HYPOCOAGULABLE STATE [None]
  - LUNG CONSOLIDATION [None]
  - PULMONARY NECROSIS [None]
  - CONFUSIONAL STATE [None]
  - URINARY INCONTINENCE [None]
  - NEUTROPHIL PERCENTAGE INCREASED [None]
  - INTERNATIONAL NORMALISED RATIO INCREASED [None]
  - BLOOD CHLORIDE DECREASED [None]
  - MOUTH HAEMORRHAGE [None]
  - COMPLEMENT FACTOR C3 DECREASED [None]
  - ANTINUCLEAR ANTIBODY POSITIVE [None]
  - HEPATIC ENCEPHALOPATHY [None]
  - CAPNOCYTOPHAGA INFECTION [None]
  - SPLENOMEGALY [None]
  - HYPERTRIGLYCERIDAEMIA [None]
  - PATHOGEN RESISTANCE [None]
  - BLOOD POTASSIUM INCREASED [None]
  - OCCULT BLOOD POSITIVE [None]
  - FATIGUE [None]
  - COAGULATION FACTOR VIII LEVEL DECREASED [None]
  - RED BLOOD CELLS CSF POSITIVE [None]
  - HYPOTENSION [None]
